FAERS Safety Report 8380408-2 (Version None)
Quarter: 2012Q2

REPORT INFORMATION
  Report Type: 
  Country: None (occurrence: None)
  Receive Date: 20120523
  Receipt Date: 20120515
  Transmission Date: 20120825
  Serious: Yes (Hospitalization)
  Sender: FDA-Public Use
  Company Number: US-GLAXOSMITHKLINE-A0928463A

PATIENT
  Age: 91 Year
  Sex: Female
  Weight: 63.6 kg

DRUGS (1)
  1. AVANDIA [Suspect]
     Indication: DIABETES MELLITUS
     Dosage: 8MG PER DAY
     Route: 048
     Dates: start: 20090324, end: 20100213

REACTIONS (5)
  - CARDIAC FAILURE CONGESTIVE [None]
  - CARDIAC FAILURE ACUTE [None]
  - WRIST FRACTURE [None]
  - SYSTOLIC DYSFUNCTION [None]
  - ACUTE MYOCARDIAL INFARCTION [None]
